FAERS Safety Report 15907836 (Version 1)
Quarter: 2019Q1

REPORT INFORMATION
  Report Type: Spontaneous
  Country: CN (occurrence: CN)
  Receive Date: 20190204
  Receipt Date: 20190204
  Transmission Date: 20190417
  Serious: Yes (Other)
  Sender: FDA-Public Use
  Company Number: CN-PFIZER INC-2019038889

PATIENT
  Age: 64 Year
  Sex: Male
  Weight: 55 kg

DRUGS (4)
  1. RABEPRAZOLE [Concomitant]
     Active Substance: RABEPRAZOLE
     Indication: PROPHYLAXIS
  2. PIPERACILLIN SODIUM/TAZOBACTAM SODIUM [Concomitant]
  3. SOLU-MEDROL [Suspect]
     Active Substance: METHYLPREDNISOLONE SODIUM SUCCINATE
     Indication: THERAPEUTIC PROCEDURE
     Dosage: 40 MG, 1X/DAY
     Route: 041
     Dates: start: 20181209, end: 20181211
  4. AMBROXOL [Concomitant]
     Active Substance: AMBROXOL
     Indication: PRODUCTIVE COUGH

REACTIONS (2)
  - Hypertension [Recovering/Resolving]
  - Dizziness [Recovering/Resolving]

NARRATIVE: CASE EVENT DATE: 20181210
